FAERS Safety Report 6604175-5 (Version None)
Quarter: 2010Q1

REPORT INFORMATION
  Report Type: 
  Country: None (occurrence: None)
  Receive Date: 20100226
  Receipt Date: 20090619
  Transmission Date: 20100710
  Serious: No
  Sender: FDA-Public Use
  Company Number: A0792507A

PATIENT
  Age: 37 Year
  Sex: Female

DRUGS (6)
  1. LAMICTAL CD [Suspect]
     Indication: DEPRESSION
     Dosage: 25MG PER DAY
     Route: 048
     Dates: start: 20090610
  2. PAXIL [Suspect]
     Route: 048
  3. VENLAFAXINE HCL [Concomitant]
  4. KLONOPIN [Concomitant]
  5. LUNESTA [Concomitant]
  6. VITAMIN D [Concomitant]
     Route: 042

REACTIONS (2)
  - ANXIETY [None]
  - DIARRHOEA [None]
